FAERS Safety Report 24564415 (Version 4)
Quarter: 2025Q3

REPORT INFORMATION
  Report Type: Spontaneous
  Country: GB (occurrence: GB)
  Receive Date: 20241030
  Receipt Date: 20250725
  Transmission Date: 20251020
  Serious: Yes (Hospitalization)
  Sender: MYLAN
  Company Number: GB-MYLANLABS-2024M1094152

PATIENT
  Age: 24 Year
  Sex: Female

DRUGS (44)
  1. CLOZARIL [Suspect]
     Active Substance: CLOZAPINE
     Indication: Schizophrenia
     Dates: start: 20171218, end: 20241014
  2. CLOZARIL [Suspect]
     Active Substance: CLOZAPINE
     Indication: Schizoaffective disorder
     Dates: start: 20171218, end: 20241014
  3. CLOZARIL [Suspect]
     Active Substance: CLOZAPINE
     Route: 048
     Dates: start: 20171218, end: 20241014
  4. CLOZARIL [Suspect]
     Active Substance: CLOZAPINE
     Route: 048
     Dates: start: 20171218, end: 20241014
  5. CLOZARIL [Suspect]
     Active Substance: CLOZAPINE
     Dosage: UNK, BID (START DATE: BETWEEN OCT-2018 AND SEP-2019, 175MG OM 275MG ON)
     Route: 048
     Dates: end: 20241014
  6. CLOZARIL [Suspect]
     Active Substance: CLOZAPINE
     Dosage: UNK, BID (START DATE: BETWEEN OCT-2018 AND SEP-2019, 175MG OM 275MG ON)
     Dates: end: 20241014
  7. CLOZARIL [Suspect]
     Active Substance: CLOZAPINE
     Dosage: UNK, BID (START DATE: BETWEEN OCT-2018 AND SEP-2019, 175MG OM 275MG ON)
     Dates: end: 20241014
  8. CLOZARIL [Suspect]
     Active Substance: CLOZAPINE
     Dosage: UNK, BID (START DATE: BETWEEN OCT-2018 AND SEP-2019, 175MG OM 275MG ON)
     Route: 048
     Dates: end: 20241014
  9. CLOZARIL [Suspect]
     Active Substance: CLOZAPINE
  10. CLOZARIL [Suspect]
     Active Substance: CLOZAPINE
  11. CLOZARIL [Suspect]
     Active Substance: CLOZAPINE
     Route: 048
  12. CLOZARIL [Suspect]
     Active Substance: CLOZAPINE
     Route: 048
  13. CLOZARIL [Suspect]
     Active Substance: CLOZAPINE
     Route: 065
  14. CLOZARIL [Suspect]
     Active Substance: CLOZAPINE
  15. CLOZARIL [Suspect]
     Active Substance: CLOZAPINE
  16. CLOZARIL [Suspect]
     Active Substance: CLOZAPINE
     Route: 065
  17. CLOZARIL [Suspect]
     Active Substance: CLOZAPINE
     Indication: Schizophrenia
     Dosage: UNK, BID (START DATE: BETWEEN OCT-2018 AND SEP-2019, 175MG OM  275MG ON)
     Dates: end: 20241014
  18. CLOZARIL [Suspect]
     Active Substance: CLOZAPINE
     Indication: Schizoaffective disorder
     Dosage: UNK, BID (START DATE: BETWEEN OCT-2018 AND SEP-2019, 175MG OM  275MG ON)
     Route: 048
     Dates: end: 20241014
  19. CLOZARIL [Suspect]
     Active Substance: CLOZAPINE
     Dosage: UNK, BID (START DATE: BETWEEN OCT-2018 AND SEP-2019, 175MG OM  275MG ON)
     Route: 048
     Dates: end: 20241014
  20. CLOZARIL [Suspect]
     Active Substance: CLOZAPINE
     Dosage: UNK, BID (START DATE: BETWEEN OCT-2018 AND SEP-2019, 175MG OM  275MG ON)
     Dates: end: 20241014
  21. CLOZARIL [Suspect]
     Active Substance: CLOZAPINE
  22. CLOZARIL [Suspect]
     Active Substance: CLOZAPINE
     Route: 048
  23. CLOZARIL [Suspect]
     Active Substance: CLOZAPINE
  24. CLOZARIL [Suspect]
     Active Substance: CLOZAPINE
     Route: 048
  25. CLOZARIL [Suspect]
     Active Substance: CLOZAPINE
     Route: 065
  26. CLOZARIL [Suspect]
     Active Substance: CLOZAPINE
     Route: 065
  27. CLOZARIL [Suspect]
     Active Substance: CLOZAPINE
  28. CLOZARIL [Suspect]
     Active Substance: CLOZAPINE
  29. SCOPOLAMINE HYDROBROMIDE [Concomitant]
     Active Substance: SCOPOLAMINE HYDROBROMIDE
  30. SCOPOLAMINE HYDROBROMIDE [Concomitant]
     Active Substance: SCOPOLAMINE HYDROBROMIDE
     Route: 065
  31. SCOPOLAMINE HYDROBROMIDE [Concomitant]
     Active Substance: SCOPOLAMINE HYDROBROMIDE
     Route: 065
  32. SCOPOLAMINE HYDROBROMIDE [Concomitant]
     Active Substance: SCOPOLAMINE HYDROBROMIDE
  33. SERTRALINE [Concomitant]
     Active Substance: SERTRALINE HYDROCHLORIDE
     Dosage: 1 DOSAGE FORM, QD (ONE TO BE TAKEN EACH DAY)
  34. SERTRALINE [Concomitant]
     Active Substance: SERTRALINE HYDROCHLORIDE
     Dosage: 1 DOSAGE FORM, QD (ONE TO BE TAKEN EACH DAY)
     Route: 065
  35. SERTRALINE [Concomitant]
     Active Substance: SERTRALINE HYDROCHLORIDE
     Dosage: 1 DOSAGE FORM, QD (ONE TO BE TAKEN EACH DAY)
     Route: 065
  36. SERTRALINE [Concomitant]
     Active Substance: SERTRALINE HYDROCHLORIDE
     Dosage: 1 DOSAGE FORM, QD (ONE TO BE TAKEN EACH DAY)
  37. SERTRALINE [Concomitant]
     Active Substance: SERTRALINE HYDROCHLORIDE
     Dosage: 1 DOSAGE FORM, QD (ONE TO BE TAKEN EACH DAY)
     Dates: start: 20240515
  38. SERTRALINE [Concomitant]
     Active Substance: SERTRALINE HYDROCHLORIDE
     Dosage: 1 DOSAGE FORM, QD (ONE TO BE TAKEN EACH DAY)
     Route: 065
     Dates: start: 20240515
  39. SERTRALINE [Concomitant]
     Active Substance: SERTRALINE HYDROCHLORIDE
     Dosage: 1 DOSAGE FORM, QD (ONE TO BE TAKEN EACH DAY)
     Route: 065
     Dates: start: 20240515
  40. SERTRALINE [Concomitant]
     Active Substance: SERTRALINE HYDROCHLORIDE
     Dosage: 1 DOSAGE FORM, QD (ONE TO BE TAKEN EACH DAY)
     Dates: start: 20240515
  41. OMEPRAZOLE [Concomitant]
     Active Substance: OMEPRAZOLE
     Dosage: 1 DOSAGE FORM, QD (ONE TO BE TAKEN EACH DAY)
     Dates: start: 20240515
  42. OMEPRAZOLE [Concomitant]
     Active Substance: OMEPRAZOLE
     Dosage: 1 DOSAGE FORM, QD (ONE TO BE TAKEN EACH DAY)
     Route: 065
     Dates: start: 20240515
  43. OMEPRAZOLE [Concomitant]
     Active Substance: OMEPRAZOLE
     Dosage: 1 DOSAGE FORM, QD (ONE TO BE TAKEN EACH DAY)
     Route: 065
     Dates: start: 20240515
  44. OMEPRAZOLE [Concomitant]
     Active Substance: OMEPRAZOLE
     Dosage: 1 DOSAGE FORM, QD (ONE TO BE TAKEN EACH DAY)
     Dates: start: 20240515

REACTIONS (4)
  - Mental impairment [Unknown]
  - Neutrophil count decreased [Recovered/Resolved]
  - Eosinophil count decreased [Not Recovered/Not Resolved]
  - Off label use [Unknown]

NARRATIVE: CASE EVENT DATE: 20190906
